FAERS Safety Report 6196509-3 (Version None)
Quarter: 2009Q2

REPORT INFORMATION
  Report Type: 
  Country: None (occurrence: None)
  Receive Date: 20090520
  Receipt Date: 20090513
  Transmission Date: 20091009
  Serious: Yes (Other)
  Sender: FDA-Public Use
  Company Number: AU-JNJFOC-20090102388

PATIENT
  Sex: Female
  Weight: 55 kg

DRUGS (1)
  1. NIZORAL [Suspect]
     Indication: CANDIDIASIS
     Route: 065

REACTIONS (6)
  - EATING DISORDER [None]
  - FEELING DRUNK [None]
  - FEELING HOT [None]
  - HEADACHE [None]
  - LOSS OF CONSCIOUSNESS [None]
  - VOMITING [None]
